FAERS Safety Report 10400395 (Version 1)
Quarter: 2014Q3

REPORT INFORMATION
  Report Type: Spontaneous
  Country: US (occurrence: US)
  Receive Date: 20140821
  Receipt Date: 20140821
  Transmission Date: 20150326
  Serious: No
  Sender: FDA-Public Use
  Company Number: US-ASTRAZENECA-2013SE82351

PATIENT
  Age: 57 Year
  Sex: Female
  Weight: 79.4 kg

DRUGS (1)
  1. SYMBICORT [Suspect]
     Active Substance: BUDESONIDE\FORMOTEROL FUMARATE DIHYDRATE
     Indication: EMPHYSEMA
     Dosage: 80/4.5 MCG TWO PUFFS TWO TIMES A DAY
     Route: 055
     Dates: start: 201302

REACTIONS (2)
  - Heart rate increased [Unknown]
  - Wheezing [Unknown]

NARRATIVE: CASE EVENT DATE: 201304
